FAERS Safety Report 4399927-9 (Version None)
Quarter: 2004Q3

REPORT INFORMATION
  Report Type: 
  Country: None (occurrence: None)
  Receive Date: 20040716
  Receipt Date: 20040630
  Transmission Date: 20050211
  Serious: Yes (Other)
  Sender: FDA-Public Use
  Company Number: 2004221988JP

PATIENT
  Age: 81 Year
  Sex: Female

DRUGS (2)
  1. SOLU-MEDROL [Suspect]
     Indication: JUVENILE ARTHRITIS
     Dosage: 250 MG DAILY, IV
     Route: 042
  2. PREDNISOLONE [Concomitant]

REACTIONS (7)
  - ALANINE AMINOTRANSFERASE INCREASED [None]
  - ASPARTATE AMINOTRANSFERASE INCREASED [None]
  - CYTOMEGALOVIRUS INFECTION [None]
  - HEPATIC FUNCTION ABNORMAL [None]
  - HISTIOCYTOSIS HAEMATOPHAGIC [None]
  - PYREXIA [None]
  - WHITE BLOOD CELL COUNT DECREASED [None]
